FAERS Safety Report 8895892 (Version 1)
Quarter: 2012Q4

REPORT INFORMATION
  Report Type: 
  Country: US (occurrence: US)
  Receive Date: 20121107
  Receipt Date: 20121107
  Transmission Date: 20130627
  Serious: No
  Sender: FDA-Public Use
  Company Number: US-ASTRAZENECA-2012SE21933

PATIENT
  Age: 17 Year
  Sex: Female
  Weight: 59 kg

DRUGS (3)
  1. ZOMIG ZMT [Suspect]
     Indication: MIGRAINE
     Dosage: TAKE 2 IN A WEEK
     Route: 048
  2. ZOMIG ZMT [Suspect]
     Indication: MIGRAINE
     Dosage: TAKES ONCE IN TWO MONTH
     Route: 048
  3. TOPAMAX [Concomitant]
     Indication: MIGRAINE

REACTIONS (3)
  - Multiple allergies [Unknown]
  - Asthma [Unknown]
  - Circumstance or information capable of leading to medication error [Unknown]
